FAERS Safety Report 18618612 (Version 1)
Quarter: 2020Q4

REPORT INFORMATION
  Report Type: Spontaneous
  Country: JO (occurrence: JO)
  Receive Date: 20201215
  Receipt Date: 20201215
  Transmission Date: 20210114
  Serious: Yes (Other)
  Sender: FDA-Public Use
  Company Number: JO-PRINSTON PHARMACEUTICAL INC.-2020PRN00417

PATIENT
  Age: 42 Year
  Sex: Male
  Weight: 115 kg

DRUGS (6)
  1. FENOFIBRATE. [Suspect]
     Active Substance: FENOFIBRATE
     Indication: BLOOD TRIGLYCERIDES INCREASED
     Dosage: 200 MG, 1X/DAY IN THE MORNING
     Route: 065
  2. PARACETAMOL [Concomitant]
     Active Substance: ACETAMINOPHEN
     Indication: HEADACHE
     Dosage: 500 MG 1-2 X/DAY
     Route: 065
  3. FENOFIBRATE. [Suspect]
     Active Substance: FENOFIBRATE
     Dosage: 100 MG, 1X/DAY IN THE MORNING
  4. SIMVASTATIN. [Concomitant]
     Active Substance: SIMVASTATIN
     Indication: BLOOD CHOLESTEROL INCREASED
     Dosage: 20 MG, 1X/DAY AT NIGHT
     Route: 065
  5. AMLODIPINE [Concomitant]
     Active Substance: AMLODIPINE BESYLATE
     Indication: HYPERTENSION
     Dosage: 5 MG, 1X/DAY IN THE MORNING
     Route: 065
  6. AMLODIPINE  5 MG, HCTZ 12.5 MG, OLMESARTAN MEDOXOMIL 40 MG [Concomitant]
     Indication: HYPERTENSION
     Dosage: ONE PILL
     Route: 065

REACTIONS (2)
  - Hypertension [Recovered/Resolved]
  - Increased appetite [Recovered/Resolved]
